FAERS Safety Report 25618463 (Version 1)
Quarter: 2025Q3

REPORT INFORMATION
  Report Type: Spontaneous
  Country: CN (occurrence: CN)
  Receive Date: 20250729
  Receipt Date: 20250729
  Transmission Date: 20251020
  Serious: Yes (Other)
  Sender: PFIZER
  Company Number: CN-PFIZER INC-PV202500089785

PATIENT
  Age: 1 Day
  Sex: Male
  Weight: 3.27 kg

DRUGS (2)
  1. MEROPENEM [Suspect]
     Active Substance: MEROPENEM
     Indication: Pneumonia
     Dosage: 0.06 G, 2X/DAY
     Route: 050
     Dates: start: 20250328
  2. SODIUM CHLORIDE [Concomitant]
     Active Substance: SODIUM CHLORIDE
     Dates: start: 20250328

REACTIONS (2)
  - Infantile diarrhoea [Recovering/Resolving]
  - Product administered to patient of inappropriate age [Unknown]
